FAERS Safety Report 5045838-5 (Version None)
Quarter: 2006Q3

REPORT INFORMATION
  Report Type: 
  Country: None (occurrence: None)
  Receive Date: 20060710
  Receipt Date: 20060628
  Transmission Date: 20061208
  Serious: Yes (Hospitalization)
  Sender: FDA-Public Use
  Company Number: GB-BRISTOL-MYERS SQUIBB COMPANY-13429485

PATIENT
  Age: 65 Year
  Sex: Male

DRUGS (3)
  1. REYATAZ [Suspect]
  2. LAMIVUDINE [Concomitant]
  3. ABACAVIR [Concomitant]

REACTIONS (1)
  - RENAL FAILURE CHRONIC [None]
